FAERS Safety Report 4778850-1 (Version None)
Quarter: 2005Q3

REPORT INFORMATION
  Report Type: 
  Country: None (occurrence: None)
  Receive Date: 20050922
  Receipt Date: 20050913
  Transmission Date: 20060218
  Serious: Yes (Other)
  Sender: FDA-Public Use
  Company Number: GB-2005-014001

PATIENT

DRUGS (1)
  1. ULTRAVIST 300 [Suspect]

REACTIONS (4)
  - CYANOSIS [None]
  - EXTRAVASATION [None]
  - MEDICATION ERROR [None]
  - OEDEMA PERIPHERAL [None]
